FAERS Safety Report 9447749 (Version 2)
Quarter: 2013Q3

REPORT INFORMATION
  Report Type: Spontaneous
  Country: JP (occurrence: JP)
  Receive Date: 20130808
  Receipt Date: 20130906
  Transmission Date: 20140515
  Serious: Yes (Death, Other)
  Sender: FDA-Public Use
  Company Number: JP-GENZYME-THYM-1003953

PATIENT
  Age: 57 Year
  Sex: Male
  Weight: 72 kg

DRUGS (7)
  1. THYMOGLOBULINE [Suspect]
     Indication: LIVER TRANSPLANT REJECTION
     Dosage: 1.39 UNK, UNK
     Route: 065
     Dates: start: 20100529, end: 20100603
  2. SOL-MELCORT [Suspect]
     Indication: PRODUCT USED FOR UNKNOWN INDICATION
     Dosage: UNK
     Route: 065
     Dates: start: 20100528, end: 20100530
  3. PROGRAF [Concomitant]
     Indication: PRODUCT USED FOR UNKNOWN INDICATION
     Dosage: UNK
     Route: 065
     Dates: start: 20100512, end: 20100607
  4. HANP [Concomitant]
     Indication: PRODUCT USED FOR UNKNOWN INDICATION
     Dosage: UNK
     Route: 065
     Dates: start: 20100512, end: 20100608
  5. HABEKACIN [Concomitant]
     Indication: PRODUCT USED FOR UNKNOWN INDICATION
     Dosage: UNK
     Route: 065
     Dates: start: 20100529, end: 20100604
  6. CEFMETAZON [Concomitant]
     Indication: PRODUCT USED FOR UNKNOWN INDICATION
     Dosage: UNK
     Route: 065
     Dates: start: 20100528, end: 20100604
  7. SOL-MELCORT [Concomitant]
     Indication: PRODUCT USED FOR UNKNOWN INDICATION
     Dosage: UNK
     Route: 065
     Dates: start: 20100528, end: 20100602

REACTIONS (2)
  - Hepatic failure [Unknown]
  - Enterococcal bacteraemia [Fatal]
